FAERS Safety Report 10932069 (Version 1)
Quarter: 2015Q1

REPORT INFORMATION
  Report Type: Spontaneous
  Country: US (occurrence: None)
  Receive Date: 20150128
  Receipt Date: 20150128
  Transmission Date: 20150721
  Serious: No
  Sender: FDA-Public Use
  Company Number: 2014TUS009466

PATIENT
  Age: 26 Year
  Sex: Male
  Weight: 74.8 kg

DRUGS (2)
  1. FETZIMA [Concomitant]
     Active Substance: LEVOMILNACIPRAN HYDROCHLORIDE
  2. BRINTELLIX [Suspect]
     Active Substance: VORTIOXETINE HYDROBROMIDE
     Indication: MAJOR DEPRESSION
     Route: 048

REACTIONS (2)
  - Paraesthesia [None]
  - Hypoaesthesia [None]
